FAERS Safety Report 6823646-X (Version None)
Quarter: 2010Q3

REPORT INFORMATION
  Report Type: 
  Country: None (occurrence: None)
  Receive Date: 20100708
  Receipt Date: 20060811
  Transmission Date: 20110219
  Serious: No
  Sender: FDA-Public Use
  Company Number: US-PFIZER INC-2006099241

PATIENT
  Sex: Male
  Weight: 78.47 kg

DRUGS (8)
  1. CHANTIX [Suspect]
     Indication: SMOKING CESSATION THERAPY
     Dates: start: 20060101, end: 20060101
  2. EFFEXOR [Concomitant]
  3. COREG [Concomitant]
  4. ALTACE [Concomitant]
  5. PLAVIX [Concomitant]
  6. LIPITOR [Concomitant]
  7. ACETYLSALICYLIC ACID [Concomitant]
  8. ALPRAZOLAM [Concomitant]

REACTIONS (4)
  - ABNORMAL DREAMS [None]
  - DRY THROAT [None]
  - HEART RATE INCREASED [None]
  - INSOMNIA [None]
